FAERS Safety Report 7934110-9 (Version None)
Quarter: 2011Q4

REPORT INFORMATION
  Report Type: 
  Country: None (occurrence: None)
  Receive Date: 20111118
  Receipt Date: 20111103
  Transmission Date: 20120403
  Serious: Yes (Hospitalization)
  Sender: FDA-Public Use
  Company Number: GGEL20111101432

PATIENT
  Age: 53 Year
  Sex: Female

DRUGS (9)
  1. GABAPENTIN [Suspect]
     Indication: PRODUCT USED FOR UNKNOWN INDICATION
     Dosage: 700 MILLIGRAM, 300 MG IN MORNING + NOON,100 MG AT NIGHT ; 300 MG AT NOON, 100 MG AT NIGHT
  2. NADOLOL (NADOLOL) (NADOLOL) [Concomitant]
  3. LACTULOSE (LACTULOSE) (LACTULOSE) [Concomitant]
  4. TRAZODONE HYDROCHLORIDE (TRAZODONE HYDROCHLORIDE) (TRAZODONE HYDROCHLO [Concomitant]
  5. UROSODIOL (UROSODIOL) (UROSODIOL) [Concomitant]
  6. SPIRONOLACTONE [Concomitant]
  7. FERROUS SULFATE (FERROUS SULFATE) (FERROUS SULFATE) [Concomitant]
  8. OMEPRAZOLE [Concomitant]
  9. CITALOPRAM HYDROBROMIDE [Concomitant]

REACTIONS (19)
  - RESTLESSNESS [None]
  - ANXIETY [None]
  - ABDOMINAL PAIN [None]
  - ALCOHOL WITHDRAWAL SYNDROME [None]
  - HAEMOGLOBIN DECREASED [None]
  - HAEMATEMESIS [None]
  - HEART RATE INCREASED [None]
  - CONFUSIONAL STATE [None]
  - HEADACHE [None]
  - PHOTOPHOBIA [None]
  - AGITATION [None]
  - BLOOD PRESSURE DIASTOLIC DECREASED [None]
  - AMMONIA INCREASED [None]
  - BLOOD ETHANOL INCREASED [None]
  - DISORIENTATION [None]
  - HEPATIC ENCEPHALOPATHY [None]
  - MELAENA [None]
  - ALCOHOL USE [None]
  - NERVOUSNESS [None]
